FAERS Safety Report 23364425 (Version 1)
Quarter: 2024Q1

REPORT INFORMATION
  Report Type: Report from Study
  Country: CH (occurrence: CH)
  Receive Date: 20240104
  Receipt Date: 20240104
  Transmission Date: 20240410
  Serious: Yes (Hospitalization)
  Sender: FDA-Public Use
  Company Number: CH-ABBVIE-5566997

PATIENT
  Age: 21 Year
  Sex: Female
  Weight: 68 kg

DRUGS (3)
  1. SKYRIZI [Suspect]
     Active Substance: RISANKIZUMAB-RZAA
     Indication: Psoriasis
     Route: 058
     Dates: start: 20231026
  2. Novalgin [Concomitant]
     Indication: Product used for unknown indication
     Dosage: FREQUENCY: MAXIMUM 8 PER DAY
     Dates: start: 20231219
  3. DAFALGAN [Concomitant]
     Active Substance: ACETAMINOPHEN
     Indication: Product used for unknown indication
     Dosage: FREQUENCY: MAXIMUM FOUR PER DAY
     Dates: start: 20231219

REACTIONS (4)
  - Spinal compression fracture [Recovering/Resolving]
  - Fall [Unknown]
  - Joint swelling [Unknown]
  - Joint injury [Recovering/Resolving]

NARRATIVE: CASE EVENT DATE: 20231201
